FAERS Safety Report 17605249 (Version 1)
Quarter: 2020Q1

REPORT INFORMATION
  Report Type: Spontaneous
  Country: US (occurrence: US)
  Receive Date: 20200331
  Receipt Date: 20200331
  Transmission Date: 20200409
  Serious: Yes (Hospitalization, Other)
  Sender: FDA-Public Use
  Company Number: US-ASTELLAS-2020US011098

PATIENT
  Age: 35 Year
  Sex: Female

DRUGS (2)
  1. XOSPATA [Suspect]
     Active Substance: GILTERITINIB
     Route: 065
     Dates: start: 20191217
  2. XOSPATA [Suspect]
     Active Substance: GILTERITINIB
     Indication: PRODUCT USED FOR UNKNOWN INDICATION
     Route: 065
     Dates: start: 20191031, end: 20191125

REACTIONS (9)
  - Brain injury [Unknown]
  - Nausea [Recovering/Resolving]
  - Bronchopulmonary aspergillosis [Unknown]
  - Vomiting [Recovering/Resolving]
  - Clostridium difficile infection [Unknown]
  - Bacteraemia [Unknown]
  - Oropharyngeal pain [Recovering/Resolving]
  - Pyrexia [Recovering/Resolving]
  - Febrile convulsion [Unknown]

NARRATIVE: CASE EVENT DATE: 201911
